FAERS Safety Report 8557043-6 (Version None)
Quarter: 2012Q3

REPORT INFORMATION
  Report Type: 
  Country: None (occurrence: None)
  Receive Date: 20120720
  Receipt Date: 20120709
  Transmission Date: 20120928
  Serious: Yes (Hospitalization, Other)
  Sender: FDA-Public Use
  Company Number: 2012P1047553

PATIENT
  Age: 51 Year
  Sex: Female
  Weight: 67.1324 kg

DRUGS (5)
  1. EPIPEN [Concomitant]
  2. METHYLPREDNISOLONE 16MG TAB [Suspect]
     Indication: PERFUME SENSITIVITY
     Dates: start: 20090101, end: 20120401
  3. METHYLPREDNISOLONE 16MG TAB [Suspect]
     Indication: ASTHMA
     Dates: start: 20090101, end: 20120401
  4. QVAR 40 [Concomitant]
  5. VITAMIN D WITH CALCIUM [Concomitant]

REACTIONS (4)
  - GASTROINTESTINAL DISORDER [None]
  - HEPATIC STEATOSIS [None]
  - IRRITABLE BOWEL SYNDROME [None]
  - STRESS [None]
